FAERS Safety Report 6816014-8 (Version None)
Quarter: 2010Q3

REPORT INFORMATION
  Report Type: 
  Country: None (occurrence: None)
  Receive Date: 20100705
  Receipt Date: 20100628
  Transmission Date: 20110219
  Serious: No
  Sender: FDA-Public Use
  Company Number: US-BIOGENIDEC-2010BI022088

PATIENT
  Age: 42 Year
  Sex: Female

DRUGS (2)
  1. TYSABRI [Suspect]
     Indication: MULTIPLE SCLEROSIS
     Route: 042
     Dates: start: 20070109, end: 20080104
  2. TYSABRI [Suspect]
     Route: 042
     Dates: start: 20100623

REACTIONS (2)
  - FEELING ABNORMAL [None]
  - PRODUCTIVE COUGH [None]
